FAERS Safety Report 17787119 (Version 1)
Quarter: 2020Q2

REPORT INFORMATION
  Report Type: Spontaneous
  Country: IT (occurrence: IT)
  Receive Date: 20200514
  Receipt Date: 20200514
  Transmission Date: 20200714
  Serious: Yes (Hospitalization)
  Sender: FDA-Public Use
  Company Number: IT-ASTRAZENECA-2020SE61922

PATIENT
  Age: 77 Year
  Sex: Male

DRUGS (8)
  1. TORVAST [Concomitant]
     Active Substance: ATORVASTATIN
     Route: 065
  2. LUVION [Concomitant]
     Route: 065
  3. TRIATEC [RAMIPRIL] [Concomitant]
     Active Substance: RAMIPRIL
     Route: 065
  4. BRILIQUE [Suspect]
     Active Substance: TICAGRELOR
     Indication: ACUTE CORONARY SYNDROME
     Route: 048
     Dates: start: 20200201, end: 20200504
  5. PANTOPRAZOLE [Concomitant]
     Active Substance: PANTOPRAZOLE
     Route: 065
  6. ZYLORIC [Concomitant]
     Active Substance: ALLOPURINOL
     Route: 065
  7. CONGESCOR [Concomitant]
     Active Substance: BISOPROLOL
     Route: 065
  8. OMNIC [Concomitant]
     Active Substance: TAMSULOSIN HYDROCHLORIDE
     Route: 065

REACTIONS (3)
  - Melaena [Unknown]
  - Gastrointestinal vascular malformation haemorrhagic [Unknown]
  - Anaemia [Unknown]

NARRATIVE: CASE EVENT DATE: 20200504
